FAERS Safety Report 5700150-3 (Version None)
Quarter: 2008Q2

REPORT INFORMATION
  Report Type: 
  Country: None (occurrence: None)
  Receive Date: 20080410
  Receipt Date: 20080402
  Transmission Date: 20081010
  Serious: Yes (Other)
  Sender: FDA-Public Use
  Company Number: PHBS2008IN03332

PATIENT
  Age: 24 Year
  Sex: Female

DRUGS (2)
  1. METHERGINE [Suspect]
     Indication: LABOUR STIMULATION
     Dosage: 0.2 MG/ML, UNK
  2. SYNTOCINON [Concomitant]

REACTIONS (1)
  - CHILLS [None]
